FAERS Safety Report 6319715-3 (Version None)
Quarter: 2009Q3

REPORT INFORMATION
  Report Type: 
  Country: None (occurrence: None)
  Receive Date: 20090822
  Receipt Date: 20080924
  Transmission Date: 20100115
  Serious: No
  Sender: FDA-Public Use
  Company Number: US-ABBOTT-08P-163-0477633-00

PATIENT
  Sex: Male
  Weight: 79.45 kg

DRUGS (4)
  1. NIASPAN [Suspect]
     Indication: LOW DENSITY LIPOPROTEIN INCREASED
     Dosage: DAILY
     Route: 048
     Dates: start: 19930101, end: 20080910
  2. ATORVASTATIN CALCIUM [Suspect]
     Indication: LOW DENSITY LIPOPROTEIN INCREASED
     Dosage: DAILY
     Dates: start: 19930101, end: 20080910
  3. FACE WASH [Concomitant]
     Indication: ROSACEA
     Route: 061
  4. FACE CREAM [Concomitant]
     Indication: ROSACEA
     Route: 061

REACTIONS (2)
  - HYPERHIDROSIS [None]
  - MUSCLE SPASMS [None]
